FAERS Safety Report 8675497 (Version 4)
Quarter: 2013Q4

REPORT INFORMATION
  Report Type: Spontaneous
  Country: US (occurrence: US)
  Receive Date: 20120720
  Receipt Date: 20131106
  Transmission Date: 20140711
  Serious: Yes (Death, Hospitalization, Other)
  Sender: FDA-Public Use
  Company Number: US-009507513-1207USA006429

PATIENT
  Age: 70 Year
  Sex: Male

DRUGS (4)
  1. INTEGRILIN [Suspect]
     Indication: ELECTROCARDIOGRAM ST SEGMENT ELEVATION
     Dosage: UNK
     Route: 042
  2. INTEGRILIN [Suspect]
     Indication: MYOCARDIAL INFARCTION
  3. LIQUAEMIN [Suspect]
     Indication: ELECTROCARDIOGRAM ST SEGMENT ELEVATION
     Route: 042
  4. LIQUAEMIN [Suspect]
     Indication: MYOCARDIAL INFARCTION

REACTIONS (3)
  - Haemoptysis [Fatal]
  - Death [Fatal]
  - Endotracheal intubation [Fatal]
